FAERS Safety Report 6541564-1 (Version None)
Quarter: 2010Q1

REPORT INFORMATION
  Report Type: 
  Country: None (occurrence: None)
  Receive Date: 20100119
  Receipt Date: 20100114
  Transmission Date: 20100710
  Serious: Yes (Hospitalization, Other)
  Sender: FDA-Public Use
  Company Number: JP-ROCHE-675500

PATIENT
  Sex: Male
  Weight: 80 kg

DRUGS (10)
  1. COPEGUS [Suspect]
     Indication: HEPATITIS C
     Dosage: DOSE DECREASED
     Route: 048
     Dates: start: 20091030, end: 20091204
  2. COPEGUS [Suspect]
     Dosage: DRUG DISCONTINUED
     Route: 048
     Dates: start: 20091211
  3. PEGASYS [Suspect]
     Indication: HEPATITIS C
     Route: 058
     Dates: start: 20091030, end: 20091120
  4. PEGASYS [Suspect]
     Route: 058
     Dates: start: 20091127, end: 20091127
  5. PEGASYS [Suspect]
     Route: 058
     Dates: start: 20091204, end: 20091211
  6. RABEPRAZOLE SODIUM [Concomitant]
     Route: 048
     Dates: start: 20091214
  7. DEPAS [Concomitant]
     Route: 048
     Dates: start: 20091201
  8. MYSLEE [Concomitant]
     Route: 048
     Dates: start: 20091201
  9. OMEPRAL [Concomitant]
     Route: 048
     Dates: start: 20091201
  10. NAUZELIN [Concomitant]
     Route: 048
     Dates: start: 20091201, end: 20091210

REACTIONS (2)
  - CARDIAC FAILURE [None]
  - NEUTROPHIL COUNT DECREASED [None]
